FAERS Safety Report 5359023-0 (Version None)
Quarter: 2007Q2

REPORT INFORMATION
  Report Type: 
  Country: None (occurrence: None)
  Receive Date: 20070615
  Receipt Date: 20070608
  Transmission Date: 20071010
  Serious: Yes (Other)
  Sender: FDA-Public Use
  Company Number: US-MERCK-0706USA01962

PATIENT
  Age: 86 Year
  Sex: Female

DRUGS (7)
  1. VASOTEC [Suspect]
     Route: 048
  2. PRINIVIL [Suspect]
     Route: 048
  3. PROCRIT [Suspect]
     Indication: ANAEMIA
     Route: 065
     Dates: start: 20060101
  4. IRON (UNSPECIFIED) [Concomitant]
     Route: 065
     Dates: start: 20070101
  5. CYANOCOBALAMIN [Concomitant]
     Indication: ANAEMIA
     Route: 065
     Dates: start: 20070101
  6. GLUCOPHAGE [Concomitant]
     Indication: BLOOD GLUCOSE ABNORMAL
     Route: 065
     Dates: start: 20070101
  7. LASIX [Suspect]
     Indication: OEDEMA
     Route: 065

REACTIONS (5)
  - DYSPNOEA [None]
  - ERUCTATION [None]
  - RETCHING [None]
  - SWELLING FACE [None]
  - VOMITING [None]
